FAERS Safety Report 4619195-X (Version None)
Quarter: 2005Q1

REPORT INFORMATION
  Report Type: 
  Country: None (occurrence: None)
  Receive Date: 20050325
  Receipt Date: 20050315
  Transmission Date: 20050727
  Serious: Yes (Hospitalization, Other)
  Sender: FDA-Public Use
  Company Number: GB-JNJFOC-20050304073

PATIENT
  Sex: Female
  Weight: 65 kg

DRUGS (5)
  1. REMICADE [Suspect]
     Indication: RHEUMATOID ARTHRITIS
     Route: 042
  2. PREDNISOLONE [Concomitant]
  3. LEDERFEN [Concomitant]
  4. FOLIC ACID [Concomitant]
  5. MISOPROSTOL [Concomitant]

REACTIONS (3)
  - CHILLS [None]
  - MALAISE [None]
  - RHEUMATOID ARTHRITIS [None]
